FAERS Safety Report 17075597 (Version 1)
Quarter: 2019Q4

REPORT INFORMATION
  Report Type: Spontaneous
  Country: US (occurrence: US)
  Receive Date: 20191125
  Receipt Date: 20191125
  Transmission Date: 20200122
  Serious: Yes (Other)
  Sender: FDA-Public Use
  Company Number: None

PATIENT
  Sex: Male

DRUGS (1)
  1. INSINOPRIL 10, 20, 30MG [Suspect]
     Active Substance: LISINOPRIL

REACTIONS (1)
  - Drug ineffective [None]
